FAERS Safety Report 19051677 (Version 1)
Quarter: 2021Q1

REPORT INFORMATION
  Report Type: Report from Study
  Country: UA (occurrence: UA)
  Receive Date: 20210324
  Receipt Date: 20210324
  Transmission Date: 20210420
  Serious: Yes (Hospitalization, Other)
  Sender: FDA-Public Use
  Company Number: UA-TEVA-2021-UA-1895367

PATIENT
  Age: 73 Year
  Sex: Male
  Weight: 63.2 kg

DRUGS (3)
  1. RETIFANLIMAB. [Suspect]
     Active Substance: RETIFANLIMAB
  2. PACLITAXEL ACTAVIS [Suspect]
     Active Substance: PACLITAXEL
     Indication: NON-SMALL CELL LUNG CANCER
     Dosage: ON DAY 1 OF EACH 21?DAY CYCLE FOR 4. DATE OF THE LAST DOSE PRIOR TO THE EVENT: 25?JAN?2021.
     Route: 042
     Dates: start: 20210104
  3. CARBOPLATIN. [Suspect]
     Active Substance: CARBOPLATIN
     Indication: NON-SMALL CELL LUNG CANCER
     Dosage: AUC 6. ON DAY 1 OF EACH 21?DAY CYCLE FOR 4 .DATE OF THE LAST DOSE PRIOR TO THE EVENT: 25?JAN?2021
     Route: 042
     Dates: start: 20210104

REACTIONS (3)
  - Platelet count decreased [Recovered/Resolved]
  - White blood cell count decreased [Recovered/Resolved]
  - Neutropenia [Recovered/Resolved]

NARRATIVE: CASE EVENT DATE: 20210207
